FAERS Safety Report 26070687 (Version 1)
Quarter: 2025Q4

REPORT INFORMATION
  Report Type: Spontaneous
  Country: US (occurrence: US)
  Receive Date: 20251120
  Receipt Date: 20251120
  Transmission Date: 20260118
  Serious: No
  Sender: SANOFI AVENTIS
  Company Number: US-SA-2025SA346316

PATIENT
  Age: 58 Year
  Sex: Female
  Weight: 66.2 kg

DRUGS (1)
  1. DUPIXENT [Suspect]
     Active Substance: DUPILUMAB
     Indication: Asthma
     Dosage: 300 MG, QOW
     Route: 058
     Dates: end: 20251021

REACTIONS (3)
  - Rebound eczema [Unknown]
  - Product dose omission issue [Unknown]
  - Pruritus [Unknown]

NARRATIVE: CASE EVENT DATE: 20250101
